FAERS Safety Report 15968899 (Version 1)
Quarter: 2019Q1

REPORT INFORMATION
  Report Type: Spontaneous
  Country: US (occurrence: US)
  Receive Date: 20190215
  Receipt Date: 20190215
  Transmission Date: 20190418
  Serious: Yes (Hospitalization)
  Sender: FDA-Public Use
  Company Number: US-OTSUKA-2018_018318

PATIENT
  Age: 21 Year
  Sex: Female
  Weight: 46.5 kg

DRUGS (4)
  1. OMNICEF [Concomitant]
     Active Substance: CEFDINIR
     Indication: SPLENECTOMY
     Dosage: UNK
     Route: 048
     Dates: start: 20070731
  2. BUSULFEX [Suspect]
     Active Substance: BUSULFAN
     Indication: THALASSAEMIA
     Dosage: UNK UNK, QD (10.7 MEGA (1X10^6) CELLS)
     Route: 042
     Dates: start: 20150527, end: 20150527
  3. EXJADE [Concomitant]
     Active Substance: DEFERASIROX
     Indication: IRON OVERLOAD
     Dosage: UNK
     Route: 065
     Dates: start: 20051215
  4. DESFERAL MESYLATE [Concomitant]
     Indication: IRON OVERLOAD
     Dosage: UNK
     Route: 058
     Dates: start: 20150225

REACTIONS (2)
  - Cholecystitis [Recovered/Resolved]
  - Venoocclusive liver disease [Recovered/Resolved]

NARRATIVE: CASE EVENT DATE: 20150622
